FAERS Safety Report 9485359 (Version 12)
Quarter: 2016Q2

REPORT INFORMATION
  Report Type: Report from Study
  Country: CA (occurrence: CA)
  Receive Date: 20130828
  Receipt Date: 20160505
  Transmission Date: 20160815
  Serious: Yes (Other)
  Sender: FDA-Public Use
  Company Number: CA-ROCHE-1256891

PATIENT
  Age: 61 Year
  Sex: Female
  Weight: 82.63 kg

DRUGS (35)
  1. NEXIUM [Concomitant]
     Active Substance: ESOMEPRAZOLE MAGNESIUM
  2. NYADERM [Concomitant]
  3. FUROSEMIDE. [Concomitant]
     Active Substance: FUROSEMIDE
  4. TYLENOL [Concomitant]
     Active Substance: ACETAMINOPHEN
  5. HYDROXYCHLOROQUINE [Concomitant]
     Active Substance: HYDROXYCHLOROQUINE
  6. HYDROMORPHONE [Concomitant]
     Active Substance: HYDROMORPHONE
  7. PANTOPRAZOLE [Concomitant]
     Active Substance: PANTOPRAZOLE SODIUM
  8. ACTEMRA [Suspect]
     Active Substance: TOCILIZUMAB
     Route: 042
     Dates: start: 20150225
  9. ARAVA [Concomitant]
     Active Substance: LEFLUNOMIDE
  10. ESTRADOT [Concomitant]
     Active Substance: ESTRADIOL
  11. XALATAN [Concomitant]
     Active Substance: LATANOPROST
  12. FORMOTEROL [Concomitant]
     Active Substance: FORMOTEROL
  13. CLOTRIMAZOLE. [Concomitant]
     Active Substance: CLOTRIMAZOLE
  14. LEFLUNOMIDE. [Concomitant]
     Active Substance: LEFLUNOMIDE
  15. DIPHENHYDRAMINE HCL [Concomitant]
     Active Substance: DIPHENHYDRAMINE HYDROCHLORIDE
     Route: 048
     Dates: start: 20110615, end: 20130912
  16. METHYLPREDNISOLONE. [Concomitant]
     Active Substance: METHYLPREDNISOLONE
     Route: 042
     Dates: start: 20110615, end: 20130912
  17. K-DUR [Concomitant]
     Active Substance: POTASSIUM CHLORIDE
  18. SYMBICORT [Concomitant]
     Active Substance: BUDESONIDE\FORMOTEROL FUMARATE DIHYDRATE
  19. PREGABALIN. [Concomitant]
     Active Substance: PREGABALIN
  20. ACTEMRA [Suspect]
     Active Substance: TOCILIZUMAB
     Indication: RHEUMATOID ARTHRITIS
     Route: 042
     Dates: start: 20140409
  21. PLAQUENIL [Concomitant]
     Active Substance: HYDROXYCHLOROQUINE SULFATE
  22. PREDNISONE. [Concomitant]
     Active Substance: PREDNISONE
  23. RALIVIA [Concomitant]
     Active Substance: TRAMADOL HYDROCHLORIDE
  24. DOMPERIDONE [Concomitant]
     Active Substance: DOMPERIDONE
  25. NORTRIPTYLINE [Concomitant]
     Active Substance: NORTRIPTYLINE
  26. RITUXAN [Suspect]
     Active Substance: RITUXIMAB
     Indication: RHEUMATOID ARTHRITIS
     Dosage: LAST DOSE OF RITUXIMAB PRIOR TO ADVERSE EVENT: 08/AUG/2013
     Route: 042
     Dates: start: 20110615, end: 20130912
  27. ZAROXOLYN [Concomitant]
     Active Substance: METOLAZONE
  28. PROLIA [Concomitant]
     Active Substance: DENOSUMAB
  29. ALDACTONE [Concomitant]
     Active Substance: SPIRONOLACTONE
  30. BUDESONIDE. [Concomitant]
     Active Substance: BUDESONIDE
  31. LATANOPROST. [Concomitant]
     Active Substance: LATANOPROST
  32. ACETAMINOPHEN. [Concomitant]
     Active Substance: ACETAMINOPHEN
     Route: 048
     Dates: start: 20110615, end: 20130912
  33. ALLOPURINOL. [Concomitant]
     Active Substance: ALLOPURINOL
  34. LASIX [Concomitant]
     Active Substance: FUROSEMIDE
  35. DOCUSATE [Concomitant]
     Active Substance: DOCUSATE

REACTIONS (10)
  - Tendon disorder [Unknown]
  - Arthralgia [Unknown]
  - Weight increased [Unknown]
  - Cough [Not Recovered/Not Resolved]
  - Lung infection [Not Recovered/Not Resolved]
  - Malaise [Not Recovered/Not Resolved]
  - Oropharyngeal pain [Recovered/Resolved]
  - Bone pain [Unknown]
  - Bursitis [Recovering/Resolving]
  - Arthropathy [Recovering/Resolving]

NARRATIVE: CASE EVENT DATE: 2013
